FAERS Safety Report 6223779-5 (Version None)
Quarter: 2009Q2

REPORT INFORMATION
  Report Type: 
  Country: None (occurrence: None)
  Receive Date: 20090611
  Receipt Date: 20090311
  Transmission Date: 20091009
  Serious: Yes (Other)
  Sender: FDA-Public Use
  Company Number: US-ABBOTT-09P-163-0502069-00

PATIENT
  Sex: Male
  Weight: 90.8 kg

DRUGS (14)
  1. HUMIRA [Suspect]
     Indication: PSORIASIS
     Dates: start: 20070514, end: 20090206
  2. ASPIRIN [Concomitant]
     Indication: DRUG USE FOR UNKNOWN INDICATION
     Dosage: X 1
     Dates: start: 20060630
  3. CALTRATE 600 + D [Concomitant]
     Indication: DRUG USE FOR UNKNOWN INDICATION
     Dosage: X 2
  4. FLONASE [Concomitant]
     Indication: DRUG USE FOR UNKNOWN INDICATION
     Dosage: 0.05 %, X 2
     Dates: start: 20080902
  5. PREVIDENT TOOTHPASTE [Concomitant]
     Indication: DRUG USE FOR UNKNOWN INDICATION
  6. ALBUTEROL [Concomitant]
     Indication: DRUG USE FOR UNKNOWN INDICATION
     Dates: start: 20080612
  7. HYDROCHLOROTHIAZIDE [Concomitant]
     Indication: DRUG USE FOR UNKNOWN INDICATION
     Dosage: X 1
     Dates: start: 20080612
  8. METOPROLOL-BETA BLOCKER (BP) [Concomitant]
     Indication: DRUG USE FOR UNKNOWN INDICATION
     Dosage: X 2
     Dates: start: 20080612
  9. SILDENAFIL CITRATE [Concomitant]
     Indication: DRUG USE FOR UNKNOWN INDICATION
     Dates: start: 20080612
  10. TERAZOSIN HCL [Concomitant]
     Indication: DRUG USE FOR UNKNOWN INDICATION
     Dosage: X 2
     Dates: start: 20081215
  11. CASODEX 50 [Concomitant]
     Indication: DRUG USE FOR UNKNOWN INDICATION
     Dosage: X 1
  12. LEUPROLIDE ACETATE [Concomitant]
     Indication: DRUG USE FOR UNKNOWN INDICATION
     Dosage: 6 MONTH
     Dates: start: 20090225
  13. RANITIDINE [Concomitant]
     Indication: DRUG USE FOR UNKNOWN INDICATION
     Dates: start: 20080612
  14. SINGULAIR [Concomitant]
     Indication: DRUG USE FOR UNKNOWN INDICATION
     Dates: start: 20080612

REACTIONS (1)
  - PROSTATE CANCER [None]
